FAERS Safety Report 12135585 (Version 3)
Quarter: 2017Q2

REPORT INFORMATION
  Report Type: Spontaneous
  Country: US (occurrence: US)
  Receive Date: 20160302
  Receipt Date: 20170607
  Transmission Date: 20170829
  Serious: Yes (Other)
  Sender: FDA-Public Use
  Company Number: US-JNJFOC-20160211382

PATIENT
  Sex: Male

DRUGS (4)
  1. RISPERDAL [Suspect]
     Active Substance: RISPERIDONE
     Indication: MENTAL DISORDER
     Route: 048
     Dates: start: 1983
  2. RISPERDAL [Suspect]
     Active Substance: RISPERIDONE
     Indication: MALAISE
     Route: 048
     Dates: start: 1998
  3. RISPERDAL [Suspect]
     Active Substance: RISPERIDONE
     Indication: MENTAL DISORDER
     Route: 048
     Dates: start: 1998
  4. RISPERDAL [Suspect]
     Active Substance: RISPERIDONE
     Indication: MALAISE
     Route: 048
     Dates: start: 1983

REACTIONS (2)
  - Hypothermia [Unknown]
  - Gynaecomastia [Unknown]

NARRATIVE: CASE EVENT DATE: 2014
